FAERS Safety Report 11453776 (Version 3)
Quarter: 2015Q3

REPORT INFORMATION
  Report Type: Spontaneous
  Country: AR (occurrence: AR)
  Receive Date: 20150903
  Receipt Date: 20150915
  Transmission Date: 20151125
  Serious: Yes (Other)
  Sender: FDA-Public Use
  Company Number: CHPA2015AR010246

PATIENT
  Age: 60 Year
  Sex: Female

DRUGS (3)
  1. NICOTINELL [Suspect]
     Active Substance: NICOTINE
     Indication: SMOKING CESSATION THERAPY
     Dosage: 2 DF, 48 DAILY
     Route: 065
     Dates: start: 2001, end: 2015
  2. NICOTINELL [Suspect]
     Active Substance: NICOTINE
     Dosage: 4 DF, 48 DAILY
     Route: 065
  3. NICOTINELL [Suspect]
     Active Substance: NICOTINE
     Indication: PRODUCT USED FOR UNKNOWN INDICATION
     Dosage: UNK
     Route: 065

REACTIONS (4)
  - Psychological trauma [Recovered/Resolved]
  - Drug dependence [Recovered/Resolved]
  - Nervousness [Unknown]
  - Withdrawal syndrome [Unknown]

NARRATIVE: CASE EVENT DATE: 2001
